FAERS Safety Report 23161714 (Version 1)
Quarter: 2023Q4

REPORT INFORMATION
  Report Type: Spontaneous
  Country: PT (occurrence: PT)
  Receive Date: 20231108
  Receipt Date: 20231108
  Transmission Date: 20240109
  Serious: Yes (Other)
  Sender: FDA-Public Use
  Company Number: None

PATIENT
  Age: 50 Year
  Sex: Female
  Weight: 56 kg

DRUGS (4)
  1. TERIFLUNOMIDE [Suspect]
     Active Substance: TERIFLUNOMIDE
     Indication: Relapsing-remitting multiple sclerosis
     Dosage: 14 MILLIGRAM DAILY; 14 MG PER DAY, DURATION : 560 DAYS, STRENGTH : 14 MG
     Dates: start: 20220401, end: 20231013
  2. OMEPRAZOLE [Concomitant]
     Active Substance: OMEPRAZOLE
     Indication: Product used for unknown indication
     Dosage: UNKNOWN DOSE AND DOSAGE, THERAPY START DATE AND END DATE : NASK
  3. ACETAMINOPHEN [Concomitant]
     Active Substance: ACETAMINOPHEN
     Indication: Product used for unknown indication
     Dosage: USED IN SOS, WITH UNKNOWN DOSE AND DOSAGE, THERAPY START DATE AND END DATE : NASK
  4. Hepatosil [Concomitant]
     Indication: Product used for unknown indication

REACTIONS (1)
  - Macule [Not Recovered/Not Resolved]

NARRATIVE: CASE EVENT DATE: 20230401
